FAERS Safety Report 10149327 (Version 3)
Quarter: 2014Q2

REPORT INFORMATION
  Report Type: Spontaneous
  Country: US (occurrence: US)
  Receive Date: 20140502
  Receipt Date: 20140626
  Transmission Date: 20141212
  Serious: Yes (Life-Threatening, Hospitalization, Other)
  Sender: FDA-Public Use
  Company Number: US-009507513-1404USA013944

PATIENT
  Age: 29 Year
  Sex: Female
  Weight: 114.74 kg

DRUGS (1)
  1. NUVARING [Suspect]
     Indication: CONTRACEPTION
     Dosage: UNK
     Route: 067
     Dates: start: 20140113, end: 20140310

REACTIONS (1)
  - Pulmonary embolism [Recovered/Resolved]
